FAERS Safety Report 9226136 (Version 2)
Quarter: 2013Q2

REPORT INFORMATION
  Report Type: Spontaneous
  Country: VN (occurrence: VN)
  Receive Date: 20130411
  Receipt Date: 20130426
  Transmission Date: 20140414
  Serious: Yes (Death)
  Sender: FDA-Public Use
  Company Number: VN-ABBOTT-13P-179-1074615-00

PATIENT
  Age: 19 Year
  Sex: Male
  Weight: 60 kg

DRUGS (3)
  1. SEVORANE [Suspect]
     Indication: MAINTENANCE OF ANAESTHESIA
     Dosage: 3% X 15MIN, 8:10 AM TO 8:25 AM
     Dates: start: 20130403, end: 20130403
  2. FENTANYL [Suspect]
     Indication: GENERAL ANAESTHESIA
     Dosage: 0.5MG/10ML
     Route: 042
     Dates: start: 20130403, end: 20130403
  3. PROPOFOL [Suspect]
     Indication: GENERAL ANAESTHESIA
     Dosage: 20MG/2ML DAILY
     Route: 042
     Dates: start: 20130403, end: 20130403

REACTIONS (1)
  - Hyperthermia malignant [Fatal]
